FAERS Safety Report 4913785-2 (Version None)
Quarter: 2006Q1

REPORT INFORMATION
  Report Type: 
  Country: None (occurrence: None)
  Receive Date: 20060216
  Receipt Date: 20060208
  Transmission Date: 20060701
  Serious: Yes (Other)
  Sender: FDA-Public Use
  Company Number: GB-GLAXOSMITHKLINE-B0409588A

PATIENT
  Sex: Male

DRUGS (2)
  1. LEUKERAN [Suspect]
     Route: 048
     Dates: start: 20051222, end: 20060101
  2. ZYLORIC [Suspect]
     Route: 048
     Dates: start: 20051222, end: 20051229

REACTIONS (2)
  - APLASTIC ANAEMIA [None]
  - RASH [None]
